FAERS Safety Report 7568949-9 (Version None)
Quarter: 2011Q2

REPORT INFORMATION
  Report Type: 
  Country: None (occurrence: None)
  Receive Date: 20110623
  Receipt Date: 20110610
  Transmission Date: 20111010
  Serious: Yes (Other)
  Sender: FDA-Public Use
  Company Number: US-ENDO PHARMACEUTICALS INC.-OPIR20110034

PATIENT
  Age: 18 Year
  Sex: Female

DRUGS (2)
  1. OPANA [Suspect]
     Indication: DRUG ABUSE
     Dosage: UNK
     Route: 048
  2. XANAX [Suspect]
     Indication: DRUG ABUSE
     Dosage: UNK
     Route: 048

REACTIONS (2)
  - DRUG DIVERSION [None]
  - DRUG ABUSE [None]
